FAERS Safety Report 9587281 (Version 7)
Quarter: 2014Q1

REPORT INFORMATION
  Report Type: Report from Study
  Country: US (occurrence: US)
  Receive Date: 20131003
  Receipt Date: 20140319
  Transmission Date: 20141002
  Serious: Yes (Death, Hospitalization, Other)
  Sender: FDA-Public Use
  Company Number: PHHO2013US011499

PATIENT
  Age: 67 Year
  Sex: Female
  Weight: 61.32 kg

DRUGS (9)
  1. LEE011 [Suspect]
     Indication: MALIGNANT MELANOMA
     Dosage: 200 MG, QD
     Route: 048
     Dates: start: 20130903, end: 20130903
  2. LEE011 [Suspect]
     Dosage: 200 MG, QD
     Route: 048
     Dates: start: 20130905, end: 20130914
  3. LGX818 [Suspect]
     Indication: MALIGNANT MELANOMA
     Dosage: 300 MG, QD
     Route: 048
     Dates: start: 20130903, end: 20130903
  4. LGX818 [Suspect]
     Dosage: 300 MG, QD
     Route: 048
     Dates: start: 20130905, end: 20130914
  5. VANCOMYCIN [Suspect]
     Dosage: 1000 MG, QD
     Route: 042
     Dates: start: 20130916, end: 20130920
  6. AUGMENTIN [Suspect]
     Dosage: 1 DF (TAB), BID
     Dates: start: 20130918, end: 20130920
  7. OXYCODONE [Concomitant]
     Indication: NECK PAIN
     Dosage: 10 MG, Q4H
     Dates: start: 20130829, end: 20130903
  8. OXYCONTIN [Concomitant]
     Indication: NECK PAIN
     Dosage: 40 MG, BID
     Dates: start: 20130829, end: 20130904
  9. POTASSIUM [Concomitant]
     Indication: HYPOKALAEMIA
     Dosage: 40 MG, BID
     Dates: start: 20130903, end: 20130903

REACTIONS (6)
  - Liver injury [Not Recovered/Not Resolved]
  - Systemic inflammatory response syndrome [Fatal]
  - Death [Fatal]
  - Pneumonia [Not Recovered/Not Resolved]
  - Nausea [Recovered/Resolved]
  - Neck pain [Not Recovered/Not Resolved]
